FAERS Safety Report 21095194 (Version 1)
Quarter: 2022Q3

REPORT INFORMATION
  Report Type: Spontaneous
  Country: US (occurrence: None)
  Receive Date: 20220716
  Receipt Date: 20220716
  Transmission Date: 20221027
  Serious: Yes (Other)
  Sender: FDA-Public Use
  Company Number: None

PATIENT
  Age: 58 Year
  Sex: Female
  Weight: 99 kg

DRUGS (7)
  1. OZEMPIC [Suspect]
     Active Substance: SEMAGLUTIDE
     Indication: Diabetes mellitus
     Dosage: OTHER QUANTITY : 1 INJECTION(S);?OTHER FREQUENCY : WEEKLY;?
     Route: 058
  2. EZETIMIBE [Concomitant]
     Active Substance: EZETIMIBE
  3. Estradiol 0.01% cream/ 2x Wkly [Concomitant]
  4. OMEPRAZOLE [Concomitant]
     Active Substance: OMEPRAZOLE
  5. Gummy (biotin 2,500 mcg, collagen 100 mg, vitamin C 15 mg, vitamin E [Concomitant]
  6. POTASSIUM [Concomitant]
     Active Substance: POTASSIUM
  7. noproxen [Concomitant]

REACTIONS (19)
  - Weight decreased [None]
  - Abdominal distension [None]
  - Diarrhoea [None]
  - Flatulence [None]
  - Constipation [None]
  - Nausea [None]
  - Illness [None]
  - Hypersomnia [None]
  - Lethargy [None]
  - Asthenia [None]
  - Abdominal pain upper [None]
  - Flatulence [None]
  - Faeces discoloured [None]
  - Regurgitation [None]
  - Self-induced vomiting [None]
  - Blood glucose increased [None]
  - Pruritus [None]
  - Pruritus [None]
  - Mental impairment [None]

NARRATIVE: CASE EVENT DATE: 20220605
